FAERS Safety Report 21984171 (Version 1)
Quarter: 2023Q1

REPORT INFORMATION
  Report Type: Spontaneous
  Country: US (occurrence: None)
  Receive Date: 20230211
  Receipt Date: 20230211
  Transmission Date: 20230418
  Serious: No
  Sender: FDA-Public Use
  Company Number: None

PATIENT
  Age: 68 Year
  Sex: Female
  Weight: 76.5 kg

DRUGS (8)
  1. PAXLOVID [Suspect]
     Active Substance: NIRMATRELVIR\RITONAVIR
     Indication: COVID-19
     Dates: start: 20230201, end: 20230206
  2. URSODIOL [Concomitant]
     Active Substance: URSODIOL
  3. QUERCITIN [Concomitant]
  4. VITAMIN C [Concomitant]
     Active Substance: ASCORBIC ACID
  5. ZINC [Concomitant]
     Active Substance: ZINC
  6. CALCIUM [Concomitant]
     Active Substance: CALCIUM
  7. VITAMIN D NOS [Concomitant]
     Active Substance: VITAMIN D NOS
  8. STOOL SOFTENER (DOCUSATE) [Concomitant]
     Active Substance: DOCUSATE

REACTIONS (1)
  - COVID-19 [None]

NARRATIVE: CASE EVENT DATE: 20230210
